FAERS Safety Report 7973557-1 (Version None)
Quarter: 2011Q4

REPORT INFORMATION
  Report Type: 
  Country: None (occurrence: None)
  Receive Date: 20111213
  Receipt Date: 20111201
  Transmission Date: 20120403
  Serious: Yes (Death)
  Sender: FDA-Public Use
  Company Number: JP-SHIRE-ALL1-2011-04741

PATIENT
  Age: 73 Year
  Sex: Male

DRUGS (1)
  1. FOSRENOL [Suspect]
     Indication: HYPERPHOSPHATAEMIA
     Dosage: 2250 MG PER DAY, OTHER
     Route: 048
     Dates: start: 20100210

REACTIONS (3)
  - INTESTINAL OBSTRUCTION [None]
  - SEPTIC SHOCK [None]
  - WRONG TECHNIQUE IN DRUG USAGE PROCESS [None]
